FAERS Safety Report 16962827 (Version 1)
Quarter: 2019Q4

REPORT INFORMATION
  Report Type: Spontaneous
  Country: US (occurrence: US)
  Receive Date: 20191025
  Receipt Date: 20191025
  Transmission Date: 20200122
  Serious: No
  Sender: FDA-Public Use
  Company Number: US-PFIZER INC-2019421405

PATIENT
  Age: 69 Year
  Sex: Male
  Weight: 123.36 kg

DRUGS (2)
  1. KEYTRUDA [Concomitant]
     Active Substance: PEMBROLIZUMAB
     Dosage: UNK(INFUSION 3WKS)
     Dates: start: 20190913
  2. INLYTA [Suspect]
     Active Substance: AXITINIB
     Indication: RENAL CANCER
     Dosage: 5 MG, (X2)
     Dates: start: 20191001

REACTIONS (1)
  - Blood pressure increased [Recovered/Resolved]
